FAERS Safety Report 14204908 (Version 1)
Quarter: 2017Q4

REPORT INFORMATION
  Report Type: Spontaneous
  Country: US (occurrence: US)
  Receive Date: 20171118
  Receipt Date: 20171118
  Transmission Date: 20180321
  Serious: No
  Sender: FDA-Public Use
  Company Number: None

PATIENT
  Age: 46 Year
  Sex: Female
  Weight: 58.5 kg

DRUGS (4)
  1. PREDNISONE. [Concomitant]
     Active Substance: PREDNISONE
  2. ENBREL [Suspect]
     Active Substance: ETANERCEPT
     Indication: RHEUMATOID ARTHRITIS
     Dosage: ?          QUANTITY:1 INJECTION(S);OTHER FREQUENCY:ONCE WEEKLY;?
     Route: 058
     Dates: start: 20170613, end: 20170818
  3. ARMOUR THYROID [Concomitant]
     Active Substance: THYROID, PORCINE
  4. METHOTREXATE. [Concomitant]
     Active Substance: METHOTREXATE

REACTIONS (4)
  - Vomiting [None]
  - Migraine [None]
  - Bladder irritation [None]
  - Bladder pain [None]

NARRATIVE: CASE EVENT DATE: 20170719
